FAERS Safety Report 23604611 (Version 1)
Quarter: 2024Q1

REPORT INFORMATION
  Report Type: Spontaneous
  Country: FR (occurrence: FR)
  Receive Date: 20240307
  Receipt Date: 20240307
  Transmission Date: 20240409
  Serious: Yes (Other)
  Sender: FDA-Public Use
  Company Number: None

PATIENT
  Age: 47 Year
  Sex: Female
  Weight: 64 kg

DRUGS (20)
  1. CARBOPLATIN [Suspect]
     Active Substance: CARBOPLATIN
     Indication: Breast cancer
     Dosage: AUC5 C1J1
     Dates: start: 20231010, end: 20231010
  2. PACLITAXEL [Suspect]
     Active Substance: PACLITAXEL
     Indication: Breast cancer
     Dosage: C3J1
     Dates: start: 20231128, end: 20231128
  3. PEMBROLIZUMAB [Suspect]
     Active Substance: PEMBROLIZUMAB
     Indication: Breast cancer
     Dosage: 200MG
     Dates: start: 20231010, end: 20231010
  4. XANAX [Concomitant]
     Active Substance: ALPRAZOLAM
     Indication: Product used for unknown indication
     Dosage: UNSPECIFIED
  5. PRIMPERAN [Concomitant]
     Active Substance: METOCLOPRAMIDE HYDROCHLORIDE
     Indication: Chemotherapy side effect prophylaxis
     Dates: start: 20231010
  6. ONDANSETRON [Concomitant]
     Active Substance: ONDANSETRON
     Indication: Chemotherapy side effect prophylaxis
     Dates: start: 20231010
  7. PREDNISONE [Concomitant]
     Active Substance: PREDNISONE
     Indication: Chemotherapy side effect prophylaxis
     Dates: start: 20231010
  8. CARBOPLATIN [Suspect]
     Active Substance: CARBOPLATIN
     Indication: Breast cancer
     Dosage: AUC5 C2J8
     Dates: start: 20231107, end: 20231107
  9. CARBOPLATIN [Suspect]
     Active Substance: CARBOPLATIN
     Indication: Breast cancer
     Dosage: AUC5 C3J1
     Dates: start: 20231128, end: 20231128
  10. CARBOPLATIN [Suspect]
     Active Substance: CARBOPLATIN
     Indication: Breast cancer
     Dosage: AUC5 C1J8
     Dates: start: 20231024, end: 20231024
  11. CARBOPLATIN [Suspect]
     Active Substance: CARBOPLATIN
     Indication: Breast cancer
     Dosage: AUC5 C2J1
     Dates: start: 20231031, end: 20231031
  12. CARBOPLATIN [Suspect]
     Active Substance: CARBOPLATIN
     Indication: Breast cancer
     Dosage: AUC5 C1J8
     Dates: start: 20231017, end: 20231017
  13. CARBOPLATIN [Suspect]
     Active Substance: CARBOPLATIN
     Indication: Breast cancer
     Dosage: AUC5 C2J15
     Dates: start: 20231114, end: 20231114
  14. PEMBROLIZUMAB [Suspect]
     Active Substance: PEMBROLIZUMAB
     Indication: Breast cancer
     Dosage: 200MG
     Dates: start: 20231031, end: 20231031
  15. PACLITAXEL [Suspect]
     Active Substance: PACLITAXEL
     Indication: Breast cancer
     Dosage: C1J1
     Dates: start: 20231010, end: 20231010
  16. PACLITAXEL [Suspect]
     Active Substance: PACLITAXEL
     Indication: Breast cancer
     Dosage: C2J15
     Dates: start: 20231114, end: 20231114
  17. PACLITAXEL [Suspect]
     Active Substance: PACLITAXEL
     Indication: Breast cancer
     Dosage: C1J8
     Dates: start: 20231017, end: 20231017
  18. PACLITAXEL [Suspect]
     Active Substance: PACLITAXEL
     Indication: Breast cancer
     Dosage: C2J8
     Dates: start: 20231107, end: 20231107
  19. PACLITAXEL [Suspect]
     Active Substance: PACLITAXEL
     Indication: Breast cancer
     Dosage: C1J15
     Dates: start: 20231024, end: 20231024
  20. PACLITAXEL [Suspect]
     Active Substance: PACLITAXEL
     Indication: Breast cancer
     Dosage: C2J1
     Dates: start: 20231031, end: 20231031

REACTIONS (1)
  - Hepatic cytolysis [Recovered/Resolved]

NARRATIVE: CASE EVENT DATE: 20231201
